FAERS Safety Report 17521146 (Version 1)
Quarter: 2020Q1

REPORT INFORMATION
  Report Type: Spontaneous
  Country: GB (occurrence: GB)
  Receive Date: 20200310
  Receipt Date: 20200310
  Transmission Date: 20200409
  Serious: Yes (Other)
  Sender: FDA-Public Use
  Company Number: GB-MYLANLABS-2020M1024305

PATIENT
  Age: 49 Year
  Sex: Female
  Weight: 95 kg

DRUGS (3)
  1. PHENYTOIN SODIUM. [Concomitant]
     Active Substance: PHENYTOIN SODIUM
     Dosage: AS PER NEUROLOGIST TO MAKE DOSE UP ...
     Dates: start: 20160804
  2. KENALOG [Concomitant]
     Active Substance: TRIAMCINOLONE ACETONIDE
     Dosage: AROUND RIGHT FINGER TENDON NODULE
     Dates: start: 20191203, end: 20191204
  3. NAPROXEN. [Suspect]
     Active Substance: NAPROXEN
     Indication: MUSCULOSKELETAL PAIN
     Dosage: 500 MILLIGRAM
     Dates: start: 20190514, end: 20190913

REACTIONS (1)
  - Drug-induced liver injury [Recovering/Resolving]

NARRATIVE: CASE EVENT DATE: 20190912
